FAERS Safety Report 24427077 (Version 1)
Quarter: 2024Q4

REPORT INFORMATION
  Report Type: Spontaneous
  Country: FR (occurrence: FR)
  Receive Date: 20241011
  Receipt Date: 20241011
  Transmission Date: 20250115
  Serious: Yes (Hospitalization, Other)
  Sender: CELLTRION
  Company Number: None

PATIENT

DRUGS (5)
  1. INFLIXIMAB [Suspect]
     Active Substance: INFLIXIMAB
     Indication: Sarcoidosis
     Dosage: 5 MG/KG
     Route: 042
     Dates: start: 20230810
  2. METRONIDAZOLE [Suspect]
     Active Substance: METRONIDAZOLE
     Indication: Helicobacter gastritis
     Dosage: UNK
     Route: 048
     Dates: start: 20230904, end: 20230918
  3. ESOMEPRAZOLE [Suspect]
     Active Substance: ESOMEPRAZOLE
     Indication: Helicobacter gastritis
     Dosage: UNK
     Route: 048
     Dates: start: 20230904, end: 20230918
  4. AMOXICILLIN [Suspect]
     Active Substance: AMOXICILLIN
     Indication: Helicobacter gastritis
     Dosage: UNK
     Route: 048
     Dates: start: 20230904, end: 20230918
  5. CLARITHROMYCIN [Suspect]
     Active Substance: CLARITHROMYCIN
     Indication: Helicobacter gastritis
     Dosage: UNK
     Route: 048
     Dates: start: 20230904, end: 20230918

REACTIONS (3)
  - Cholestasis [Not Recovered/Not Resolved]
  - Hepatic cytolysis [Not Recovered/Not Resolved]
  - Intentional product use issue [Unknown]
